FAERS Safety Report 15019955 (Version 1)
Quarter: 2018Q2

REPORT INFORMATION
  Report Type: Spontaneous
  Country: US (occurrence: US)
  Receive Date: 20180618
  Receipt Date: 20180618
  Transmission Date: 20180711
  Serious: No
  Sender: FDA-Public Use
  Company Number: US-BAUSCH-BL-2017-019832

PATIENT
  Sex: Female

DRUGS (1)
  1. SOLODYN [Suspect]
     Active Substance: MINOCYCLINE HYDROCHLORIDE
     Indication: ROSACEA
     Dosage: STARTED YEARS AGO AND ENDED YEARS AGO
     Route: 048

REACTIONS (1)
  - Off label use [Recovered/Resolved]
